FAERS Safety Report 5382925-6 (Version None)
Quarter: 2007Q3

REPORT INFORMATION
  Report Type: 
  Country: None (occurrence: None)
  Receive Date: 20070705
  Receipt Date: 20070705
  Transmission Date: 20080115
  Serious: Yes (Life-Threatening, Other)
  Sender: FDA-Public Use
  Company Number: None

PATIENT
  Age: 63 Year
  Sex: Male
  Weight: 115.2136 kg

DRUGS (1)
  1. HYDROCODONE BITARTRATE [Suspect]
     Indication: ARTHRALGIA
     Dosage: 1-2 Q 4-6 HRS PRN OTHER
     Route: 050
     Dates: start: 20070625, end: 20070703

REACTIONS (8)
  - AGITATION [None]
  - ANXIETY [None]
  - DECREASED APPETITE [None]
  - FATIGUE [None]
  - PERSONALITY CHANGE [None]
  - PHARMACEUTICAL PRODUCT COMPLAINT [None]
  - REACTION TO DRUG EXCIPIENTS [None]
  - SCREAMING [None]
